FAERS Safety Report 8372477-0 (Version None)
Quarter: 2012Q2

REPORT INFORMATION
  Report Type: 
  Country: None (occurrence: None)
  Receive Date: 20120521
  Receipt Date: 20120509
  Transmission Date: 20120825
  Serious: Yes (Hospitalization)
  Sender: FDA-Public Use
  Company Number: US-JNJFOC-20120213046

PATIENT
  Sex: Male
  Weight: 66.5 kg

DRUGS (11)
  1. REMICADE [Suspect]
     Indication: INFLAMMATORY BOWEL DISEASE
     Route: 042
     Dates: start: 20080829, end: 20110504
  2. PROBIOTICS [Concomitant]
  3. MIRALAX [Concomitant]
  4. HUMIRA [Concomitant]
     Dates: start: 20110615
  5. PRILOSEC [Concomitant]
  6. ZOFRAN [Concomitant]
  7. MULTI-VITAMINS [Concomitant]
  8. FERROUS SULFATE TAB [Concomitant]
  9. CALCIUM WITH VITAMIN D [Concomitant]
  10. HYOSCYAMINE [Concomitant]
  11. ZANTAC [Concomitant]

REACTIONS (1)
  - INTESTINAL STENOSIS [None]
